FAERS Safety Report 5154244-4 (Version None)
Quarter: 2006Q4

REPORT INFORMATION
  Report Type: 
  Country: None (occurrence: None)
  Receive Date: 20061120
  Receipt Date: 20051003
  Transmission Date: 20070319
  Serious: Yes (Other)
  Sender: FDA-Public Use
  Company Number: PHEH2005US10978

PATIENT
  Age: 70 Year
  Sex: Female
  Weight: 57.142 kg

DRUGS (18)
  1. AREDIA [Suspect]
     Indication: METASTASES TO BONE
     Dosage: UNK, UNK
     Dates: start: 19971215, end: 20020311
  2. CYTOXAN [Concomitant]
  3. FLUOROURACIL [Concomitant]
  4. ARIMIDEX [Concomitant]
     Indication: BREAST CANCER
     Dosage: 1 MG, QD
     Route: 048
     Dates: start: 19980601
  5. CALCIUM [Concomitant]
  6. CARBIDOPA [Concomitant]
     Indication: PARKINSON'S DISEASE
  7. TIMOLOL MALEATE [Concomitant]
  8. ASPIRIN [Concomitant]
  9. GEMZAR [Concomitant]
     Indication: CHEMOTHERAPY
  10. ZOMETA [Suspect]
     Indication: METASTASES TO BONE
     Dates: start: 20020506, end: 20030703
  11. TOPROL-XL [Concomitant]
     Dosage: 25 MG, QD
  12. COUMADIN [Concomitant]
  13. SINEMET [Concomitant]
  14. HERCEPTIN [Concomitant]
  15. LUMIGAN [Concomitant]
  16. PRILOSEC [Concomitant]
  17. ZELODA [Concomitant]
  18. TAXOTERE [Concomitant]
     Dates: start: 20000201

REACTIONS (36)
  - ACTINOMYCOSIS [None]
  - AORTIC ARTERIOSCLEROSIS [None]
  - AORTIC VALVE INCOMPETENCE [None]
  - APHONIA [None]
  - BONE DEBRIDEMENT [None]
  - BONE DISORDER [None]
  - CALCINOSIS [None]
  - COUGH [None]
  - DENTAL CARIES [None]
  - DILATATION ATRIAL [None]
  - ENDODONTIC PROCEDURE [None]
  - FISTULA [None]
  - MAXILLOFACIAL OPERATION [None]
  - METASTASES TO LIVER [None]
  - MITRAL VALVE INCOMPETENCE [None]
  - OPEN WOUND [None]
  - OSTEOMYELITIS [None]
  - OSTEONECROSIS [None]
  - PAIN [None]
  - PERIODONTAL INFECTION [None]
  - PERIODONTAL OPERATION [None]
  - PERIODONTITIS [None]
  - PRIMARY SEQUESTRUM [None]
  - PRURITUS [None]
  - PULMONARY VALVE INCOMPETENCE [None]
  - PURULENT DISCHARGE [None]
  - SEASONAL ALLERGY [None]
  - SINUS BRADYCARDIA [None]
  - SINUSITIS [None]
  - SWELLING [None]
  - TOOTH DISORDER [None]
  - TOOTH EXTRACTION [None]
  - TOOTH IMPACTED [None]
  - TRICUSPID VALVE INCOMPETENCE [None]
  - VENTRICULAR HYPERTROPHY [None]
  - WHEEZING [None]
